FAERS Safety Report 10441277 (Version 1)
Quarter: 2014Q3

REPORT INFORMATION
  Report Type: Spontaneous
  Country: US (occurrence: US)
  Receive Date: 20140909
  Receipt Date: 20140909
  Transmission Date: 20150326
  Serious: No
  Sender: FDA-Public Use
  Company Number: US-PFIZER INC-2014246298

PATIENT
  Age: 50 Year
  Sex: Female
  Weight: 81 kg

DRUGS (4)
  1. LYRICA [Suspect]
     Active Substance: PREGABALIN
     Indication: FIBROMYALGIA
     Dosage: 2X/DAY (225 MG MORNING AND 150 MG AT NIGHT)
  2. LYRICA [Suspect]
     Active Substance: PREGABALIN
     Dosage: 2X/DAY (225 MG MORNING AND 150 MG AT NIGHT)
     Dates: start: 201402
  3. LYRICA [Suspect]
     Active Substance: PREGABALIN
     Dosage: 2X/DAY (225 MG MORNING AND 150 MG AT NIGHT)
  4. ELAVIL [Concomitant]
     Active Substance: AMITRIPTYLINE HYDROCHLORIDE
     Dosage: 50 MG, 1X/DAY (IN THE EVENING)

REACTIONS (2)
  - Local swelling [Not Recovered/Not Resolved]
  - Weight increased [Unknown]
